FAERS Safety Report 15954409 (Version 3)
Quarter: 2019Q1

REPORT INFORMATION
  Report Type: Spontaneous
  Country: US (occurrence: US)
  Receive Date: 20190213
  Receipt Date: 20190307
  Transmission Date: 20190417
  Serious: Yes (Hospitalization, Other)
  Sender: FDA-Public Use
  Company Number: US-PHARMING-PHAUS2019000104

PATIENT

DRUGS (1)
  1. RUCONEST [Suspect]
     Active Substance: HUMAN C1-ESTERASE INHIBITOR
     Indication: HEREDITARY ANGIOEDEMA
     Dosage: 4200 IU, EVERY OTHER DAY
     Route: 042
     Dates: start: 20151009

REACTIONS (4)
  - Unevaluable event [Unknown]
  - Clostridium difficile infection [Unknown]
  - Drug ineffective for unapproved indication [Unknown]
  - Pneumonia viral [Unknown]

NARRATIVE: CASE EVENT DATE: 2019
